FAERS Safety Report 10259596 (Version 1)
Quarter: 2014Q2

REPORT INFORMATION
  Report Type: Spontaneous
  Country: CH (occurrence: CH)
  Receive Date: 20140625
  Receipt Date: 20140625
  Transmission Date: 20141212
  Serious: Yes (Death)
  Sender: FDA-Public Use
  Company Number: PHHY2014CH074359

PATIENT
  Age: 70 Year
  Sex: Female
  Weight: 117 kg

DRUGS (7)
  1. METFORMIN [Suspect]
     Indication: TYPE 2 DIABETES MELLITUS
     Dosage: 500 MG AT 8 A.M., 1,000 MG AT 1 P.M., AND 1,000 MG AT 7 P.M.
  2. INSULIN [Suspect]
     Dosage: UNK
     Route: 065
  3. INSULIN [Suspect]
     Dosage: 5 U, UNK
  4. IRBESARTAN [Concomitant]
     Dosage: 300 MG
  5. FUROSEMIDE [Concomitant]
     Dosage: 125 MG
  6. HEPARIN [Concomitant]
  7. CETIRIZINE [Concomitant]

REACTIONS (5)
  - Cardiac arrest [Fatal]
  - Circulatory collapse [Fatal]
  - Toxicity to various agents [Fatal]
  - Lactic acidosis [Fatal]
  - Decreased appetite [Unknown]
